FAERS Safety Report 7823572-3 (Version None)
Quarter: 2011Q4

REPORT INFORMATION
  Report Type: 
  Country: None (occurrence: None)
  Receive Date: 20111019
  Receipt Date: 20111011
  Transmission Date: 20120403
  Serious: Yes (Other)
  Sender: FDA-Public Use
  Company Number: FR-US-EMD SERONO, INC.-230001E08FRA

PATIENT
  Sex: Female
  Weight: 53 kg

DRUGS (4)
  1. REBIF [Suspect]
     Indication: MULTIPLE SCLEROSIS
     Route: 058
     Dates: start: 20070620, end: 20080304
  2. LEVOCARNITINE [Concomitant]
     Indication: ASTHENIA
     Route: 048
     Dates: start: 20070919
  3. DIHYDROERGOTAMINE [Concomitant]
     Indication: HEADACHE
     Route: 048
     Dates: start: 20070713
  4. PLACEBO [Suspect]
     Indication: MULTIPLE SCLEROSIS
     Route: 048
     Dates: start: 20070919

REACTIONS (1)
  - RETINOPATHY [None]
